FAERS Safety Report 16420972 (Version 2)
Quarter: 2019Q2

REPORT INFORMATION
  Report Type: Spontaneous
  Country: US (occurrence: US)
  Receive Date: 20190612
  Receipt Date: 20190617
  Transmission Date: 20190711
  Serious: No
  Sender: FDA-Public Use
  Company Number: US-GLAXOSMITHKLINE-US2019103431

PATIENT
  Sex: Female

DRUGS (2)
  1. FLONASE ALLERGY RELIEF [Suspect]
     Active Substance: FLUTICASONE PROPIONATE
     Indication: RHINITIS ALLERGIC
     Dosage: I OVERSPRAYED./ I HAD 1 SPRAY IN ONE NOSTRIL
  2. FLONASE ALLERGY RELIEF [Suspect]
     Active Substance: FLUTICASONE PROPIONATE
     Indication: EYE ALLERGY

REACTIONS (4)
  - Inappropriate schedule of product administration [Unknown]
  - Malaise [Unknown]
  - Incorrect dose administered [Unknown]
  - Nausea [Not Recovered/Not Resolved]
